FAERS Safety Report 9182038 (Version 1)
Quarter: 2013Q1

REPORT INFORMATION
  Report Type: Spontaneous
  Country: US (occurrence: US)
  Receive Date: 20130322
  Receipt Date: 20130322
  Transmission Date: 20140127
  Serious: Yes (Death, Hospitalization)
  Sender: FDA-Public Use
  Company Number: US-ABBOTT-13P-163-1066006-00

PATIENT
  Age: 33 Year
  Sex: Female

DRUGS (1)
  1. HUMIRA [Suspect]
     Indication: RHEUMATOID ARTHRITIS

REACTIONS (6)
  - Ear pain [Fatal]
  - Loss of consciousness [Fatal]
  - Bronchitis [Fatal]
  - Meningitis [Fatal]
  - Nasopharyngitis [Unknown]
  - Sinusitis [Unknown]
